FAERS Safety Report 23798431 (Version 1)
Quarter: 2024Q2

REPORT INFORMATION
  Report Type: Spontaneous
  Country: IT (occurrence: IT)
  Receive Date: 20240430
  Receipt Date: 20240430
  Transmission Date: 20240715
  Serious: Yes (Other)
  Sender: FDA-Public Use
  Company Number: None

PATIENT
  Age: 35 Year
  Sex: Female

DRUGS (1)
  1. TAVOR (LORAZEPAM) [Suspect]
     Active Substance: LORAZEPAM
     Indication: Intentional self-injury
     Dosage: 50 MG, THE PATIENT TOOK 20 TABLETS OF TAVOR 2.5 MG
     Route: 048
     Dates: start: 20240207, end: 20240207

REACTIONS (4)
  - Drug abuse [Recovered/Resolved]
  - Intentional overdose [Recovering/Resolving]
  - Toxicity to various agents [Recovered/Resolved]
  - Sopor [Recovering/Resolving]

NARRATIVE: CASE EVENT DATE: 20240207
